FAERS Safety Report 8060844-4 (Version None)
Quarter: 2012Q1

REPORT INFORMATION
  Report Type: 
  Country: None (occurrence: None)
  Receive Date: 20120120
  Receipt Date: 20110210
  Transmission Date: 20120608
  Serious: No
  Sender: FDA-Public Use
  Company Number: US-ALLERGAN-1102028US

PATIENT
  Age: 88 Year
  Sex: Male

DRUGS (3)
  1. RESTASIS [Suspect]
     Indication: DRY EYE
     Dosage: 2 GTT, BID
     Route: 047
     Dates: start: 20100825, end: 20100907
  2. LUMIGAN [Concomitant]
     Indication: GLAUCOMA
     Dosage: 1 GTT, UNK
     Route: 047
  3. BETAMOL [Concomitant]
     Dosage: 1 GTT, UNK
     Route: 047

REACTIONS (5)
  - EYE PAIN [None]
  - KERATITIS HERPETIC [None]
  - EYELID OEDEMA [None]
  - LACRIMATION INCREASED [None]
  - OCULAR HYPERAEMIA [None]
